FAERS Safety Report 9232762 (Version 2)
Quarter: 2013Q2

REPORT INFORMATION
  Report Type: Spontaneous
  Country: US (occurrence: US)
  Receive Date: 20130416
  Receipt Date: 20130426
  Transmission Date: 20140414
  Serious: Yes (Hospitalization, Other)
  Sender: FDA-Public Use
  Company Number: US-TARO-2013P1004614

PATIENT
  Age: 51 Year
  Sex: Female
  Weight: 61.24 kg

DRUGS (3)
  1. WARFARIN SODIUM TABLETS USP 5MG [Suspect]
     Indication: ATRIAL FIBRILLATION
     Route: 048
     Dates: start: 2007
  2. ARMOR [Concomitant]
     Dates: start: 201110
  3. SYNTHROID [Concomitant]
     Dates: end: 201110

REACTIONS (3)
  - Urticaria [Recovering/Resolving]
  - Mitral valve replacement [Recovered/Resolved]
  - Hot flush [Not Recovered/Not Resolved]
